FAERS Safety Report 12956706 (Version 1)
Quarter: 2016Q4

REPORT INFORMATION
  Report Type: Spontaneous
  Country: BR (occurrence: BR)
  Receive Date: 20161119
  Receipt Date: 20161119
  Transmission Date: 20170207
  Serious: Yes (Death, Life-Threatening, Congenital Anomaly, Other)
  Sender: FDA-Public Use
  Company Number: BR-ZYDUS-012711

PATIENT
  Age: 36 Hour
  Sex: Male
  Weight: 1.05 kg

DRUGS (3)
  1. METHYLDOPA. [Concomitant]
     Active Substance: METHYLDOPA
     Indication: PRODUCT USED FOR UNKNOWN INDICATION
     Route: 064
  2. LOSARTAN. [Suspect]
     Active Substance: LOSARTAN
     Indication: PRODUCT USED FOR UNKNOWN INDICATION
     Route: 064
  3. BETAMETHASONE. [Concomitant]
     Active Substance: BETAMETHASONE
     Indication: PRODUCT USED FOR UNKNOWN INDICATION
     Route: 064

REACTIONS (10)
  - Renal tubular disorder [Unknown]
  - Intraventricular haemorrhage neonatal [Unknown]
  - Foetal exposure during pregnancy [Unknown]
  - Bone formation decreased [Unknown]
  - Kidney enlargement [Unknown]
  - Cardiac arrest neonatal [Fatal]
  - Delayed fontanelle closure [Unknown]
  - Cerebral haemorrhage neonatal [Unknown]
  - Pulmonary haemorrhage [Unknown]
  - Pulmonary hypoplasia [Unknown]
